FAERS Safety Report 7226795-X (Version None)
Quarter: 2011Q1

REPORT INFORMATION
  Report Type: 
  Country: None (occurrence: None)
  Receive Date: 20110114
  Receipt Date: 20101227
  Transmission Date: 20110831
  Serious: Yes (Other)
  Sender: FDA-Public Use
  Company Number: US-PFIZER INC-HQWYE734803AUG04

PATIENT
  Sex: Female

DRUGS (3)
  1. PROVERA [Suspect]
     Dosage: UNK
     Route: 048
  2. PREMARIN [Suspect]
     Dosage: UNK
     Route: 048
  3. ESTRACE [Suspect]
     Dosage: UNK

REACTIONS (1)
  - BREAST CANCER [None]
